FAERS Safety Report 21703156 (Version 1)
Quarter: 2022Q4

REPORT INFORMATION
  Report Type: Spontaneous
  Country: US (occurrence: US)
  Receive Date: 20221209
  Receipt Date: 20221209
  Transmission Date: 20230112
  Serious: No
  Sender: FDA-Public Use
  Company Number: US-VIIV HEALTHCARE LIMITED-US2022179114

PATIENT
  Age: 30 Year
  Sex: Male

DRUGS (2)
  1. RILPIVIRINE [Suspect]
     Active Substance: RILPIVIRINE
     Indication: HIV infection
     Dosage: UNK UNK, Z, EVERY-2-MONTH INJECTIONS: 600MG/900MG KIT: 600MG CABOTEGRAVIR+900MG RILPIVIRINE
     Route: 065
     Dates: start: 20221129, end: 20221129
  2. CABOTEGRAVIR [Suspect]
     Active Substance: CABOTEGRAVIR
     Indication: HIV infection
     Dosage: UNK UNK, Z, EVERY-2-MONTH INJECTIONS: 600MG/900MG KIT: 600MG CABOTEGRAVIR+900MG RILPIVIRINE
     Route: 065
     Dates: start: 20221129, end: 20221129

REACTIONS (1)
  - Rash [Unknown]
